FAERS Safety Report 6172383-6 (Version None)
Quarter: 2009Q2

REPORT INFORMATION
  Report Type: 
  Country: None (occurrence: None)
  Receive Date: 20090429
  Receipt Date: 20090427
  Transmission Date: 20091009
  Serious: Yes (Death, Other)
  Sender: FDA-Public Use
  Company Number: PHHY2009DE02652

PATIENT
  Sex: Female

DRUGS (4)
  1. EXJADE [Suspect]
     Indication: BLOOD IRON INCREASED
     Dosage: 2000 MG, QD
     Route: 048
     Dates: start: 20080401, end: 20081212
  2. EXJADE [Suspect]
     Indication: MYELODYSPLASTIC SYNDROME
  3. MARCUMAR [Concomitant]
     Dosage: UNK
     Route: 048
     Dates: start: 20020501, end: 20081214
  4. TORSEMIDE [Concomitant]
     Dosage: 5 MG
     Route: 048
     Dates: end: 20081214

REACTIONS (5)
  - GASTROINTESTINAL SURGERY [None]
  - ILEUS [None]
  - INTESTINAL STRANGULATION [None]
  - MULTI-ORGAN FAILURE [None]
  - SEPTIC SHOCK [None]
